FAERS Safety Report 4562998-0 (Version None)
Quarter: 2005Q1

REPORT INFORMATION
  Report Type: 
  Country: None (occurrence: None)
  Receive Date: 20050126
  Receipt Date: 20050114
  Transmission Date: 20050727
  Serious: Yes (Hospitalization)
  Sender: FDA-Public Use
  Company Number: 2005015217

PATIENT
  Sex: Male

DRUGS (4)
  1. DESITIN DIAPER RASH (ZINC OXIDE) [Suspect]
     Indication: LACERATION
     Dosage: PRN, TOPICAL
     Route: 061
  2. ATORVASTATIN (ATORVASTATIN) [Concomitant]
  3. ATENOLOL [Concomitant]
  4. ACETYLSALICYLIC ACID SRT [Concomitant]

REACTIONS (1)
  - ARTERIAL OCCLUSIVE DISEASE [None]
